FAERS Safety Report 7489898-0 (Version None)
Quarter: 2011Q2

REPORT INFORMATION
  Report Type: 
  Country: None (occurrence: None)
  Receive Date: 20110512
  Receipt Date: 20110426
  Transmission Date: 20111010
  Serious: Yes (Death, Hospitalization)
  Sender: FDA-Public Use
  Company Number: 1000018857

PATIENT
  Age: 43 Year
  Sex: Female

DRUGS (14)
  1. EZETROL (EZETIMIBE) (EZETIMIBE) [Concomitant]
  2. ESCITALOPRAM [Suspect]
     Indication: DEPRESSION
     Dosage: ORAL; (30 MG), ORAL; (ONCE), ORAL
     Route: 048
     Dates: start: 20110111
  3. ESCITALOPRAM [Suspect]
     Indication: DEPRESSION
     Dosage: ORAL; (30 MG), ORAL; (ONCE), ORAL
     Route: 048
     Dates: start: 20110113
  4. GLICLAZIDE (GLICLAZIDE) (GLICLAZIDE) [Concomitant]
  5. EFFEXOR (VENLAFAXINE HYDROCHLORIDE) (VENLAFAXINE HYDROCHLORIDE) [Concomitant]
  6. ATIVAN [Suspect]
     Dosage: (1 MG, AS REQUIRED); (ONCE)
     Dates: start: 20110113
  7. CLONAZEPAM [Suspect]
     Dosage: 1.5 MG (0.5 MG, 3 IN 1 D); (ONCE)
     Dates: start: 20110113
  8. METFORMIN HCL [Concomitant]
  9. VITAMIN D (VITAMIN D NOS) (VITAMIN D NOS) [Concomitant]
  10. APIXABAN [Suspect]
     Indication: THROMBOSIS PROPHYLAXIS
     Dosage: ORAL
     Route: 048
     Dates: start: 20090904
  11. APIXABAN [Suspect]
     Indication: THROMBOSIS PROPHYLAXIS
     Dosage: ORAL
     Route: 048
     Dates: start: 20110114
  12. PROPAFENONE HCL [Suspect]
     Dosage: 450 MG (150 MG, 3 IN 1 D); (ONCE)
     Dates: start: 20110113
  13. PROPAFENONE HCL [Suspect]
     Dosage: 450 MG (150 MG, 3 IN 1 D); (ONCE)
     Dates: start: 20100301
  14. METOPROLOL TARTRATE [Suspect]
     Dosage: 100 MG (50 MG, 2 IN 1 D); (ONCE)
     Dates: start: 20110113

REACTIONS (11)
  - BLOOD PH DECREASED [None]
  - COMPLETED SUICIDE [None]
  - HYPOTENSION [None]
  - DECREASED APPETITE [None]
  - MULTIPLE DRUG OVERDOSE INTENTIONAL [None]
  - HYPOXIA [None]
  - DEPRESSED LEVEL OF CONSCIOUSNESS [None]
  - CONDITION AGGRAVATED [None]
  - CARDIAC ARREST [None]
  - PSYCHIATRIC SYMPTOM [None]
  - STRESS [None]
